FAERS Safety Report 4397548-5 (Version None)
Quarter: 2004Q3

REPORT INFORMATION
  Report Type: 
  Country: None (occurrence: None)
  Receive Date: 20040705
  Receipt Date: 20040622
  Transmission Date: 20050211
  Serious: Yes (Other)
  Sender: FDA-Public Use
  Company Number: HQWYE610923JUN04

PATIENT
  Age: 35 Year
  Sex: Male

DRUGS (4)
  1. BENEFIX [Suspect]
     Indication: FACTOR IX DEFICIENCY
     Dosage: SEE IMAGE
     Route: 042
     Dates: start: 20010501, end: 20010501
  2. BENEFIX [Suspect]
     Indication: FACTOR IX DEFICIENCY
     Dosage: SEE IMAGE
     Route: 042
     Dates: start: 20010101
  3. BENEFIX [Suspect]
     Indication: FACTOR IX DEFICIENCY
     Dosage: SEE IMAGE
     Route: 042
     Dates: start: 20010501
  4. FACTOR VIIA (FACTOR VIIA) [Concomitant]

REACTIONS (8)
  - ANTI FACTOR IX ANTIBODY POSITIVE [None]
  - CENTRAL LINE INFECTION [None]
  - HAEMARTHROSIS [None]
  - HAEMATOMA [None]
  - HAEMODYNAMIC INSTABILITY [None]
  - HYPOVOLAEMIC SHOCK [None]
  - STAPHYLOCOCCAL SEPSIS [None]
  - TRAUMATIC HAEMATOMA [None]
